FAERS Safety Report 21111465 (Version 2)
Quarter: 2022Q4

REPORT INFORMATION
  Report Type: Spontaneous
  Country: CH (occurrence: None)
  Receive Date: 20220721
  Receipt Date: 20221020
  Transmission Date: 20230112
  Serious: Yes (Death, Other)
  Sender: FDA-Public Use
  Company Number: CH-ROCHE-3116203

PATIENT
  Age: 66 Year
  Sex: Female

DRUGS (2)
  1. TECENTRIQ [Suspect]
     Active Substance: ATEZOLIZUMAB
     Indication: Pancreatic carcinoma metastatic
     Route: 041
     Dates: start: 20220411, end: 20220620
  2. ABRAXANE [Concomitant]
     Active Substance: PACLITAXEL

REACTIONS (6)
  - Venoocclusive disease [Unknown]
  - Off label use [Unknown]
  - Portal hypertension [Not Recovered/Not Resolved]
  - Biliary tract disorder [Not Recovered/Not Resolved]
  - Disease progression [Fatal]
  - Drug ineffective [Unknown]

NARRATIVE: CASE EVENT DATE: 20220519
